FAERS Safety Report 25981771 (Version 1)
Quarter: 2025Q4

REPORT INFORMATION
  Report Type: Report from Study
  Country: EG (occurrence: EG)
  Receive Date: 20251031
  Receipt Date: 20251031
  Transmission Date: 20260117
  Serious: Yes (Disabling, Other)
  Sender: Haleon PLC
  Company Number: EG-002147023-NVSC2024EG178842

PATIENT
  Age: 68 Year
  Sex: Female
  Weight: 112 kg

DRUGS (3)
  1. VOLTAREN [Suspect]
     Active Substance: DICLOFENAC SODIUM
     Indication: Back pain
     Dosage: UNK, ROA: UNKNOWN
  2. KISQALI [Suspect]
     Active Substance: RIBOCICLIB SUCCINATE
     Indication: Breast cancer metastatic
     Dosage: 600 MG, QD FOR 21 DAYS AND 7 DAYS OFF
     Route: 048
     Dates: start: 20240827
  3. KISQALI [Suspect]
     Active Substance: RIBOCICLIB SUCCINATE
     Dosage: 200 MG, OTHER (2 TABS ONCE DAILY FOR 3 WEEKS AND 1 WEEK OFF. (OFF LABEL DOSE))
     Route: 048

REACTIONS (4)
  - Movement disorder [Not Recovered/Not Resolved]
  - Back pain [Not Recovered/Not Resolved]
  - Dyspnoea [Not Recovered/Not Resolved]
  - Insomnia [Not Recovered/Not Resolved]

NARRATIVE: CASE EVENT DATE: 20240827
